FAERS Safety Report 7960935-X (Version None)
Quarter: 2011Q4

REPORT INFORMATION
  Report Type: 
  Country: None (occurrence: None)
  Receive Date: 20111202
  Receipt Date: 20111122
  Transmission Date: 20120403
  Serious: Yes (Other)
  Sender: FDA-Public Use
  Company Number: JP-2011-12295

PATIENT

DRUGS (1)
  1. SAMSCA [Suspect]
     Dosage: ORAL ; ORAL
     Route: 048

REACTIONS (3)
  - PYELONEPHRITIS [None]
  - DIALYSIS [None]
  - TIC [None]
